FAERS Safety Report 17456330 (Version 1)
Quarter: 2020Q1

REPORT INFORMATION
  Report Type: Spontaneous
  Country: US (occurrence: US)
  Receive Date: 20200225
  Receipt Date: 20200225
  Transmission Date: 20200409
  Serious: Yes (Other)
  Sender: FDA-Public Use
  Company Number: None

PATIENT
  Age: 44 Year
  Sex: Female
  Weight: 76 kg

DRUGS (4)
  1. LOSARTAN 100MG [Concomitant]
     Active Substance: LOSARTAN
     Dates: start: 20160101
  2. JARDIANCE [Suspect]
     Active Substance: EMPAGLIFLOZIN
     Indication: DIABETES MELLITUS
     Route: 002
     Dates: start: 20200106, end: 20200221
  3. HYDROCHLOROTHIAZIDE 25MG [Concomitant]
     Active Substance: HYDROCHLOROTHIAZIDE
     Dates: start: 20160101
  4. IBUPROFEN 400MG [Concomitant]
     Active Substance: IBUPROFEN
     Dates: start: 20200206, end: 20200220

REACTIONS (2)
  - Pyelonephritis [None]
  - Acute kidney injury [None]

NARRATIVE: CASE EVENT DATE: 20200220
